FAERS Safety Report 8933037 (Version 1)
Quarter: 2012Q4

REPORT INFORMATION
  Report Type: Spontaneous
  Country: US (occurrence: None)
  Receive Date: 20121127
  Receipt Date: 20121127
  Transmission Date: 20130627
  Serious: Yes (Other)
  Sender: FDA-Public Use
  Company Number: None

PATIENT
  Age: 20 Year
  Sex: Female
  Weight: 39.6 kg

DRUGS (7)
  1. EFAVIRENZ [Suspect]
     Indication: HIV INFECTION
     Route: 048
     Dates: start: 20121023, end: 20121027
  2. ENTRICITABINE/TENOFOVIR DF (TRUVADA) [Suspect]
     Indication: HIV INFECTION
     Route: 048
     Dates: start: 20121023, end: 20121027
  3. DEPO-PROVERA [Concomitant]
  4. COTRIMOXAZOLE [Concomitant]
  5. ACYCLOVIR [Concomitant]
  6. MAGNESIUM TRISILICATE [Concomitant]
  7. ISONIAZID [Concomitant]

REACTIONS (1)
  - Stevens-Johnson syndrome [None]
